FAERS Safety Report 5359480-X (Version None)
Quarter: 2007Q2

REPORT INFORMATION
  Report Type: 
  Country: None (occurrence: None)
  Receive Date: 20070615
  Receipt Date: 20070605
  Transmission Date: 20071010
  Serious: Yes (Other)
  Sender: FDA-Public Use
  Company Number: US-PFIZER INC-2007046318

PATIENT
  Sex: Female
  Weight: 59 kg

DRUGS (5)
  1. ZOLOFT [Suspect]
     Indication: DEPRESSION
  2. CHANTIX [Suspect]
     Indication: SMOKING CESSATION THERAPY
     Dates: start: 20070603, end: 20070604
  3. LEXAPRO [Suspect]
     Indication: DEPRESSION
     Dates: start: 20070101, end: 20070101
  4. PREMPRO [Concomitant]
     Indication: HORMONE REPLACEMENT THERAPY
  5. MULTI-VITAMINS [Concomitant]

REACTIONS (8)
  - AGITATION [None]
  - BIPOLAR DISORDER [None]
  - DISORIENTATION [None]
  - EMOTIONAL DISTRESS [None]
  - HALLUCINATION [None]
  - MOVEMENT DISORDER [None]
  - NAUSEA [None]
  - OVERDOSE [None]
